FAERS Safety Report 16772932 (Version 1)
Quarter: 2019Q3

REPORT INFORMATION
  Report Type: Spontaneous
  Country: US (occurrence: US)
  Receive Date: 20190904
  Receipt Date: 20190904
  Transmission Date: 20191005
  Serious: Yes (Disabling)
  Sender: FDA-Public Use
  Company Number: US-JNJFOC-20190805609

PATIENT
  Age: 52 Year
  Sex: Female

DRUGS (2)
  1. ADDERALL [Concomitant]
     Active Substance: AMPHETAMINE ASPARTATE\AMPHETAMINE SULFATE\DEXTROAMPHETAMINE SACCHARATE\DEXTROAMPHETAMINE SULFATE
  2. SPRAVATO [Suspect]
     Active Substance: ESKETAMINE
     Indication: PRODUCT USED FOR UNKNOWN INDICATION
     Dosage: TOTAL THREE SESSIONS; HEADACHE AFTER SECOND SESSION

REACTIONS (1)
  - Headache [Unknown]
